FAERS Safety Report 23650766 (Version 1)
Quarter: 2024Q1

REPORT INFORMATION
  Report Type: Spontaneous
  Country: CA (occurrence: CA)
  Receive Date: 20240320
  Receipt Date: 20240320
  Transmission Date: 20240410
  Serious: Yes (Other)
  Sender: FDA-Public Use
  Company Number: CA-DRL-USA-LIT/CAN/24/0004277

PATIENT
  Age: 35 Year
  Sex: Female

DRUGS (4)
  1. ZOLEDRONIC ACID [Suspect]
     Active Substance: ZOLEDRONIC ACID
     Indication: Hypercalcaemia
     Dosage: 4MG
  2. PAMIDRONATE [Suspect]
     Active Substance: PAMIDRONATE DISODIUM
     Indication: Hypercalcaemia
     Dosage: 60MG
  3. CALCITONIN [Suspect]
     Active Substance: CALCITONIN
     Indication: Hypercalcaemia
  4. CINACALCET [Suspect]
     Active Substance: CINACALCET
     Indication: Hyperparathyroidism

REACTIONS (5)
  - Exposure during pregnancy [Unknown]
  - Placental insufficiency [Unknown]
  - Hypoparathyroidism [Unknown]
  - Foetal heart rate deceleration abnormality [Unknown]
  - Hypocalcaemia [Unknown]
